FAERS Safety Report 7822963-4 (Version None)
Quarter: 2011Q4

REPORT INFORMATION
  Report Type: 
  Country: None (occurrence: None)
  Receive Date: 20111018
  Receipt Date: 20101123
  Transmission Date: 20120403
  Serious: No
  Sender: FDA-Public Use
  Company Number: US-ASTRAZENECA-2010SE55884

PATIENT
  Sex: Female

DRUGS (3)
  1. SYMBICORT [Suspect]
     Indication: CHRONIC OBSTRUCTIVE PULMONARY DISEASE
     Dosage: 80/4.5 UG 2
     Route: 055
     Dates: start: 20101011
  2. PAIN MEDICATION [Concomitant]
  3. ALBUTEROL [Concomitant]

REACTIONS (2)
  - COUGH [None]
  - DRUG DOSE OMISSION [None]
